APPROVED DRUG PRODUCT: MEMANTINE HYDROCHLORIDE
Active Ingredient: MEMANTINE HYDROCHLORIDE
Strength: 5MG
Dosage Form/Route: TABLET;ORAL
Application: A090052 | Product #001
Applicant: TEVA PHARMACEUTICALS USA
Approved: Oct 25, 2011 | RLD: No | RS: No | Type: DISCN